FAERS Safety Report 6329679-4 (Version None)
Quarter: 2009Q3

REPORT INFORMATION
  Report Type: 
  Country: None (occurrence: None)
  Receive Date: 20090824
  Receipt Date: 20090824
  Transmission Date: 20100115
  Serious: Yes (Hospitalization)
  Sender: FDA-Public Use
  Company Number: None

PATIENT

DRUGS (1)
  1. ENULOSE [Suspect]
     Dosage: 473 MILLILITERS
     Dates: start: 20071105, end: 20090701

REACTIONS (2)
  - HALLUCINATION [None]
  - PRODUCT SUBSTITUTION ISSUE [None]
